FAERS Safety Report 9077573 (Version 1)
Quarter: 2013Q1

REPORT INFORMATION
  Report Type: Report from Study
  Country: US (occurrence: US)
  Receive Date: 20130130
  Receipt Date: 20130130
  Transmission Date: 20140127
  Serious: No
  Sender: FDA-Public Use
  Company Number: US-ABBOTT-12P-163-0960766-00

PATIENT
  Sex: Female
  Weight: 90.7 kg

DRUGS (5)
  1. HUMIRA 40 MG/ 0.8 ML PRE-FILLED SYRINGE [Suspect]
     Indication: PSORIATIC ARTHROPATHY
     Dates: start: 2005, end: 20120702
  2. ASPIRIN [Concomitant]
     Indication: PROPHYLAXIS
  3. METHOTREXATE [Concomitant]
     Indication: PSORIATIC ARTHROPATHY
  4. FOLIC ACID [Concomitant]
     Indication: PSORIATIC ARTHROPATHY
  5. LEVOXYL [Concomitant]
     Indication: THYROID DISORDER

REACTIONS (1)
  - Drug ineffective [Not Recovered/Not Resolved]
